FAERS Safety Report 10606255 (Version 1)
Quarter: 2014Q4

REPORT INFORMATION
  Report Type: Spontaneous
  Country: US (occurrence: None)
  Receive Date: 20141121
  Receipt Date: 20141121
  Transmission Date: 20150529
  Serious: Yes (Hospitalization)
  Sender: FDA-Public Use
  Company Number: FK201405377

PATIENT
  Age: 71 Year
  Sex: Female

DRUGS (8)
  1. DOXORUBICIN (MANUFACTURER UNKNOWN) (DOXORUBICIN HYDROCHLORIDE) (DOXORUBICIN HYDORCHLORIDE) ? [Suspect]
     Active Substance: DOXORUBICIN
     Indication: METASTASES TO OVARY
     Dosage: CYCLICAL
     Dates: start: 201012
  2. DOXORUBICIN (MANUFACTURER UNKNOWN) (DOXORUBICIN HYDROCHLORIDE) (DOXORUBICIN HYDORCHLORIDE) ? [Suspect]
     Active Substance: DOXORUBICIN
     Indication: UTERINE CANCER
     Dosage: CYCLICAL
     Dates: start: 201012
  3. CISPLATIN (MANUFACTURER UNKNOWN) (CISPLATIN) (CISPLATIN) [Suspect]
     Active Substance: CISPLATIN
     Indication: METASTASES TO OVARY
     Dosage: CYCLICAL
     Dates: start: 201012
  4. PACLITAXEL (MANUFACTURER UNKNOWN) (PACLITAXEL) (PACLITAXEL) [Suspect]
     Active Substance: PACLITAXEL
     Indication: UTERINE CANCER
     Dosage: CYCLICAL
     Dates: start: 201012
  5. CARBOPLATIN (MANUFACTURER UNKNOW) (CARBOPLATIN) (CARBOPLATIN) [Suspect]
     Active Substance: CARBOPLATIN
     Indication: UTERINE CANCER
     Dosage: CYCLICAL
     Dates: start: 201005
  6. CARBOPLATIN (MANUFACTURER UNKNOW) (CARBOPLATIN) (CARBOPLATIN) [Suspect]
     Active Substance: CARBOPLATIN
     Indication: METASTASES TO OVARY
     Dosage: CYCLICAL
     Dates: start: 201005
  7. PACLITAXEL (MANUFACTURER UNKNOWN) (PACLITAXEL) (PACLITAXEL) [Suspect]
     Active Substance: PACLITAXEL
     Indication: METASTASES TO OVARY
     Dosage: CYCLICAL
     Dates: start: 201012
  8. CISPLATIN (MANUFACTURER UNKNOWN) (CISPLATIN) (CISPLATIN) [Suspect]
     Active Substance: CISPLATIN
     Indication: UTERINE CANCER
     Dosage: CYCLICAL
     Dates: start: 201012

REACTIONS (28)
  - Malignant neoplasm progression [None]
  - Upper-airway cough syndrome [None]
  - Hypotension [None]
  - Mast cell activation syndrome [None]
  - Dyspnoea [None]
  - Hot flush [None]
  - Rhinitis [None]
  - Pain in extremity [None]
  - Presyncope [None]
  - Hyperhidrosis [None]
  - Polydipsia [None]
  - Arthralgia [None]
  - Abdominal distension [None]
  - Pruritus [None]
  - Diverticulitis [None]
  - Nausea [None]
  - Chills [None]
  - Palpitations [None]
  - Visual impairment [None]
  - Vaginal infection [None]
  - Thrombophlebitis superficial [None]
  - Lacrimation increased [None]
  - Polyuria [None]
  - Dyspepsia [None]
  - Fatigue [None]
  - Mastocytosis [None]
  - Neuropathy peripheral [None]
  - Constipation [None]
